FAERS Safety Report 8138324-7 (Version None)
Quarter: 2012Q1

REPORT INFORMATION
  Report Type: 
  Country: None (occurrence: None)
  Receive Date: 20120213
  Receipt Date: 20120206
  Transmission Date: 20120608
  Serious: Yes (Hospitalization)
  Sender: FDA-Public Use
  Company Number: 2011SP059569

PATIENT
  Age: 70 Year
  Sex: Female

DRUGS (29)
  1. AMICALIQ (AMICALIQ /01208801/) [Suspect]
     Indication: PRODUCT USED FOR UNKNOWN INDICATION
     Dosage: IV
     Route: 042
     Dates: start: 20110920
  2. GASMOTIN (MOSAPRIDE CITRATE HYDRATE) [Suspect]
     Indication: PRODUCT USED FOR UNKNOWN INDICATION
     Dosage: 15 MG;TID;PO
     Route: 048
     Dates: start: 20110920, end: 20110921
  3. BROTIZOLAM [Concomitant]
  4. TOLPERISONE HYDROCHLORIDE [Concomitant]
  5. ENZYME [Concomitant]
  6. TOFISOPAM [Concomitant]
  7. ROSUVASTATIN CALCIUM [Suspect]
     Indication: PRODUCT USED FOR UNKNOWN INDICATION
     Dosage: 2.5 MG;QD;PO
     Route: 048
     Dates: end: 20110920
  8. LENDORMIN D (BROTIZOLAM) [Suspect]
     Dosage: 0.25 MG;QD;PO
     Route: 048
     Dates: end: 20110920
  9. ROSUVASTATIN CALCIUM [Concomitant]
  10. ISOPRENALINE HYDROCHLORIDE [Concomitant]
  11. LOXOPROFEN SODIUM HYDRATE [Concomitant]
  12. MIRTAZAPINE [Suspect]
     Indication: PRODUCT USED FOR UNKNOWN INDICATION
     Dosage: 15 MG;QD;PO ; 30 MG;QD;PO ; 15 MG;QD;PO ; 30 MG;QD;PO ; 15 MG;QD;PO ; PO
     Route: 048
     Dates: start: 20101013, end: 20110712
  13. MIRTAZAPINE [Suspect]
     Indication: DEPENDENCE
     Dosage: 15 MG;QD;PO ; 30 MG;QD;PO ; 15 MG;QD;PO ; 30 MG;QD;PO ; 15 MG;QD;PO ; PO
     Route: 048
     Dates: start: 20101013, end: 20110712
  14. MIRTAZAPINE [Suspect]
     Indication: PRODUCT USED FOR UNKNOWN INDICATION
     Dosage: 15 MG;QD;PO ; 30 MG;QD;PO ; 15 MG;QD;PO ; 30 MG;QD;PO ; 15 MG;QD;PO ; PO
     Route: 048
     Dates: start: 20100804, end: 20100817
  15. MIRTAZAPINE [Suspect]
     Indication: DEPENDENCE
     Dosage: 15 MG;QD;PO ; 30 MG;QD;PO ; 15 MG;QD;PO ; 30 MG;QD;PO ; 15 MG;QD;PO ; PO
     Route: 048
     Dates: start: 20100804, end: 20100817
  16. MIRTAZAPINE [Suspect]
     Indication: PRODUCT USED FOR UNKNOWN INDICATION
     Dosage: 15 MG;QD;PO ; 30 MG;QD;PO ; 15 MG;QD;PO ; 30 MG;QD;PO ; 15 MG;QD;PO ; PO
     Route: 048
     Dates: start: 20100818, end: 20101012
  17. MIRTAZAPINE [Suspect]
     Indication: DEPENDENCE
     Dosage: 15 MG;QD;PO ; 30 MG;QD;PO ; 15 MG;QD;PO ; 30 MG;QD;PO ; 15 MG;QD;PO ; PO
     Route: 048
     Dates: start: 20100818, end: 20101012
  18. MIRTAZAPINE [Suspect]
     Indication: PRODUCT USED FOR UNKNOWN INDICATION
     Dosage: 15 MG;QD;PO ; 30 MG;QD;PO ; 15 MG;QD;PO ; 30 MG;QD;PO ; 15 MG;QD;PO ; PO
     Route: 048
     Dates: start: 20110922, end: 20111002
  19. MIRTAZAPINE [Suspect]
     Indication: DEPENDENCE
     Dosage: 15 MG;QD;PO ; 30 MG;QD;PO ; 15 MG;QD;PO ; 30 MG;QD;PO ; 15 MG;QD;PO ; PO
     Route: 048
     Dates: start: 20110922, end: 20111002
  20. MIRTAZAPINE [Suspect]
     Indication: PRODUCT USED FOR UNKNOWN INDICATION
     Dosage: 15 MG;QD;PO ; 30 MG;QD;PO ; 15 MG;QD;PO ; 30 MG;QD;PO ; 15 MG;QD;PO ; PO
     Route: 048
     Dates: start: 20110713, end: 20110809
  21. MIRTAZAPINE [Suspect]
     Indication: DEPENDENCE
     Dosage: 15 MG;QD;PO ; 30 MG;QD;PO ; 15 MG;QD;PO ; 30 MG;QD;PO ; 15 MG;QD;PO ; PO
     Route: 048
     Dates: start: 20110713, end: 20110809
  22. MIRTAZAPINE [Suspect]
     Indication: PRODUCT USED FOR UNKNOWN INDICATION
     Dosage: 15 MG;QD;PO ; 30 MG;QD;PO ; 15 MG;QD;PO ; 30 MG;QD;PO ; 15 MG;QD;PO ; PO
     Route: 048
     Dates: start: 20110810, end: 20110921
  23. MIRTAZAPINE [Suspect]
     Indication: DEPENDENCE
     Dosage: 15 MG;QD;PO ; 30 MG;QD;PO ; 15 MG;QD;PO ; 30 MG;QD;PO ; 15 MG;QD;PO ; PO
     Route: 048
     Dates: start: 20110810, end: 20110921
  24. OXAZOLAM [Concomitant]
  25. LANSOPRAZOLE [Suspect]
     Indication: PRODUCT USED FOR UNKNOWN INDICATION
     Dosage: 15 MG;QD
     Dates: end: 20110920
  26. LANSOPRAZOLE [Concomitant]
  27. SODIUM AZULENE SULFONATE,I-GLUTAMINE [Concomitant]
  28. BERIZYM (DIGESTIVE ENZYME PREPARATION) [Suspect]
     Indication: PRODUCT USED FOR UNKNOWN INDICATION
     Dosage: 1 GM;TID;PO
     Route: 048
     Dates: end: 20110920
  29. DOMPERIDONE [Concomitant]

REACTIONS (15)
  - TOXIC SKIN ERUPTION [None]
  - ASPARTATE AMINOTRANSFERASE INCREASED [None]
  - HEPATIC FUNCTION ABNORMAL [None]
  - SOMNOLENCE [None]
  - GAMMA-GLUTAMYLTRANSFERASE INCREASED [None]
  - ERYTHEMA MULTIFORME [None]
  - ERYTHEMA [None]
  - ECZEMA [None]
  - NAUSEA [None]
  - DECREASED APPETITE [None]
  - BURNING SENSATION [None]
  - HOT FLUSH [None]
  - ABDOMINAL DISCOMFORT [None]
  - ALANINE AMINOTRANSFERASE INCREASED [None]
  - DRUG HYPERSENSITIVITY [None]
